FAERS Safety Report 4515487-3 (Version None)
Quarter: 2004Q4

REPORT INFORMATION
  Report Type: 
  Country: None (occurrence: None)
  Receive Date: 20041126
  Receipt Date: 20040927
  Transmission Date: 20050328
  Serious: Yes (Death)
  Sender: FDA-Public Use
  Company Number: 2004236909US

PATIENT
  Age: 41 Year
  Sex: 0

DRUGS (4)
  1. ACETAMINOPHEN [Suspect]
     Dosage: ORAL
     Route: 048
  2. BEXTRA [Suspect]
     Dosage: ORAL
     Route: 048
  3. OXYCODONE (OXYCODONE) [Suspect]
     Dosage: ORAL
     Route: 048
  4. HYDROCODONE(HYDROCODONE) [Suspect]
     Dosage: ORAL
     Route: 048

REACTIONS (4)
  - CARDIO-RESPIRATORY ARREST [None]
  - COMPLETED SUICIDE [None]
  - INTENTIONAL SELF-INJURY [None]
  - MULTIPLE DRUG OVERDOSE [None]
